FAERS Safety Report 5100031-2 (Version None)
Quarter: 2006Q3

REPORT INFORMATION
  Report Type: 
  Country: None (occurrence: None)
  Receive Date: 20060908
  Receipt Date: 20060728
  Transmission Date: 20061208
  Serious: Yes (Hospitalization)
  Sender: FDA-Public Use
  Company Number: AU-SANOFI-SYNTHELABO-F01200601759

PATIENT
  Sex: Male
  Weight: 69.4 kg

DRUGS (21)
  1. TEMAZEPAM [Concomitant]
     Indication: INSOMNIA
     Dosage: 10-20 MG
     Dates: start: 20060703, end: 20060703
  2. PYRIDOXINE HCL [Concomitant]
     Dates: start: 20060704, end: 20060705
  3. CHLORPROMAZINE [Concomitant]
     Dates: start: 20060704, end: 20060704
  4. WARFARIN SODIUM [Concomitant]
     Indication: PROPHYLAXIS
     Dates: start: 20060703, end: 20060703
  5. PROGOUT [Concomitant]
     Indication: GOUT
     Dates: start: 20060703, end: 20060703
  6. RADIOTHERAPY [Suspect]
     Indication: OESOPHAGEAL CARCINOMA
     Route: 050
  7. METOCLOPRAMIDE [Concomitant]
     Indication: NAUSEA
     Dosage: 40 MG DAILY
     Route: 065
     Dates: start: 20060719, end: 20060719
  8. PARACETAMOL [Concomitant]
     Dates: start: 20060703, end: 20060703
  9. PARACETAMOL [Concomitant]
     Dosage: 2 X 500 MG
     Dates: start: 20060719, end: 20060719
  10. PARACETAMOL [Concomitant]
     Dosage: 500 MG
     Dates: start: 20060730, end: 20060730
  11. TROPISETRON [Concomitant]
     Indication: NAUSEA
     Dates: start: 20060704, end: 20060705
  12. TROPISETRON [Concomitant]
     Dosage: 5 MG DAILY
     Dates: start: 20060722, end: 20060723
  13. DEXAMETHASONE TAB [Concomitant]
     Indication: NAUSEA
     Dates: start: 20060704, end: 20060704
  14. DEXAMETHASONE TAB [Concomitant]
     Dosage: 1/2 X 4 MG
     Dates: start: 20060718, end: 20060724
  15. RABEPRAZOLE SODIUM [Concomitant]
     Indication: PROPHYLAXIS
     Dates: start: 20060703, end: 20060703
  16. RABEPRAZOLE SODIUM [Concomitant]
     Dosage: 20 MG DAILY
     Dates: start: 20060718, end: 20060720
  17. ALLOPURINOL [Concomitant]
     Indication: GOUT
     Dates: start: 20060703, end: 20060703
  18. ALLOPURINOL [Concomitant]
     Dosage: 300 MG DAILY
     Dates: start: 20060718, end: 20060731
  19. OMEPRAZOLE [Concomitant]
     Dosage: 20 MG DAILY
     Dates: start: 20060720, end: 20060731
  20. FLUOROURACIL [Suspect]
     Indication: OESOPHAGEAL CARCINOMA
     Route: 042
     Dates: start: 20060605
  21. OXALIPLATIN [Suspect]
     Indication: OESOPHAGEAL CARCINOMA
     Route: 042
     Dates: start: 20060704, end: 20060704

REACTIONS (11)
  - ABDOMINAL PAIN UPPER [None]
  - ANAEMIA [None]
  - CHEST PAIN [None]
  - CHOLECYSTITIS [None]
  - DYSPHAGIA [None]
  - GOUT [None]
  - HYPOALBUMINAEMIA [None]
  - METASTASIS [None]
  - SUPRAVENTRICULAR TACHYCARDIA [None]
  - TACHYCARDIA [None]
  - WEIGHT DECREASED [None]
